FAERS Safety Report 7039136-8 (Version None)
Quarter: 2010Q4

REPORT INFORMATION
  Report Type: 
  Country: None (occurrence: None)
  Receive Date: 20101012
  Receipt Date: 20100927
  Transmission Date: 20110411
  Serious: Yes (Other)
  Sender: FDA-Public Use
  Company Number: PHHY2010BR67654

PATIENT
  Age: 60 Year
  Sex: Male
  Weight: 71 kg

DRUGS (3)
  1. DIOVAN [Suspect]
     Dosage: 160 MG/DAY
  2. MANIDIPINE HYDROCHLORIDE [Concomitant]
     Dosage: 20 MG/DAY
  3. FUROSEMIDE [Concomitant]
     Dosage: 20 MG/DAY

REACTIONS (4)
  - BLOOD CHOLESTEROL INCREASED [None]
  - BLOOD PRESSURE INADEQUATELY CONTROLLED [None]
  - CHEST DISCOMFORT [None]
  - DYSPNOEA [None]
